FAERS Safety Report 10229394 (Version 3)
Quarter: 2016Q1

REPORT INFORMATION
  Report Type: Report from Study
  Country: CN (occurrence: CN)
  Receive Date: 20140611
  Receipt Date: 20160329
  Transmission Date: 20160525
  Serious: Yes (Hospitalization)
  Sender: FDA-Public Use
  Company Number: CN-ROCHE-1413869

PATIENT
  Age: 54 Year
  Sex: Female

DRUGS (21)
  1. OMEPRAZOLE. [Concomitant]
     Active Substance: OMEPRAZOLE
     Indication: PROPHYLAXIS
     Route: 065
     Dates: start: 20140526, end: 20140604
  2. GLUTATHIONE [Concomitant]
     Active Substance: GLUTATHIONE
     Indication: PROPHYLAXIS
     Route: 065
     Dates: start: 20140526, end: 20140526
  3. PIPERACILLIN SODIUM [Concomitant]
     Active Substance: PIPERACILLIN SODIUM
     Indication: ANTI-INFECTIVE THERAPY
     Route: 065
     Dates: start: 20140527, end: 20140528
  4. VINCRISTINE [Suspect]
     Active Substance: VINCRISTINE
     Indication: DIFFUSE LARGE B-CELL LYMPHOMA
     Dosage: DATE OF MOST RECENT DOSE (2 MG) PRIOR TO AE ONSET : 11/MAY/2014.
     Route: 040
     Dates: start: 20140207
  5. PREDNISONE. [Suspect]
     Active Substance: PREDNISONE
     Indication: DIFFUSE LARGE B-CELL LYMPHOMA
     Dosage: DATE OF MOST RECENT DOSE (100 MG) PRIOR TO AE ONSET : 11/MAY/2014.
     Route: 048
     Dates: start: 20140206
  6. HUMAN IMMUNOGLOBULIN [Concomitant]
     Active Substance: HUMAN IMMUNOGLOBULIN G
     Indication: IMMUNODEFICIENCY
     Route: 065
     Dates: start: 20140528, end: 20140530
  7. DOXORUBICIN [Suspect]
     Active Substance: DOXORUBICIN
     Indication: DIFFUSE LARGE B-CELL LYMPHOMA
     Dosage: DATE OF MOST RECENT DOSE (83 MG) PRIOR TO AE ONSET : 11/MAY/2014.
     Route: 042
     Dates: start: 20140207
  8. GLUTATHIONE [Concomitant]
     Active Substance: GLUTATHIONE
     Route: 065
     Dates: start: 20140529, end: 20140531
  9. POTASSIUM CHLORIDE. [Concomitant]
     Active Substance: POTASSIUM CHLORIDE
     Indication: MINERAL SUPPLEMENTATION
     Route: 065
     Dates: start: 20140528, end: 20140604
  10. HYDROCORTISONE SODIUM SUCCINATE [Concomitant]
     Active Substance: HYDROCORTISONE SODIUM SUCCINATE
     Indication: ANTIINFLAMMATORY THERAPY
     Route: 065
     Dates: start: 20140529, end: 20140529
  11. CYCLOPHOSPHAMIDE. [Suspect]
     Active Substance: CYCLOPHOSPHAMIDE
     Indication: DIFFUSE LARGE B-CELL LYMPHOMA
     Dosage: DATE OF MOST RECENT DOSE (1245 MG) PRIOR TO AE ONSET : 11/MAY/2014.
     Route: 042
     Dates: start: 20140207
  12. ALANYL-GLUTAMINE [Concomitant]
     Indication: NUTRITIONAL SUPPLEMENTATION
     Route: 065
     Dates: start: 20140526, end: 20140604
  13. VANCOMYCIN [Concomitant]
     Active Substance: VANCOMYCIN
     Indication: ANTIINFLAMMATORY THERAPY
     Route: 065
     Dates: start: 20140531, end: 20140604
  14. THYMALFASIN [Concomitant]
     Active Substance: THYMALFASIN
     Indication: IMMUNODEFICIENCY
     Route: 065
     Dates: start: 20140602, end: 20140604
  15. OBINUTUZUMAB [Suspect]
     Active Substance: OBINUTUZUMAB
     Indication: DIFFUSE LARGE B-CELL LYMPHOMA
     Dosage: DATE OF MOST RECENT DOSE (VOLUME :250 ML AND DOSE CONCENTRATION : 4 MG/ML) PRIOR TO AE ONSET : 10/MA
     Route: 042
     Dates: start: 20140206
  16. GLUTATHIONE [Concomitant]
     Active Substance: GLUTATHIONE
     Route: 065
     Dates: start: 20140602, end: 20140602
  17. FLUCONAZOLE. [Concomitant]
     Active Substance: FLUCONAZOLE
     Route: 065
     Dates: start: 20140530, end: 20140604
  18. PIPERACILLIN SODIUM [Concomitant]
     Active Substance: PIPERACILLIN SODIUM
     Route: 065
     Dates: start: 20140603, end: 20140604
  19. SODIUM LACTATE. [Concomitant]
     Active Substance: SODIUM LACTATE
     Indication: ACID BASE BALANCE
     Route: 065
     Dates: start: 20140528, end: 20140528
  20. MEROPENEM. [Concomitant]
     Active Substance: MEROPENEM
     Indication: ANTIINFLAMMATORY THERAPY
     Route: 065
     Dates: start: 20140528, end: 20140603
  21. FLUCONAZOLE. [Concomitant]
     Active Substance: FLUCONAZOLE
     Indication: ANTI-INFECTIVE THERAPY
     Route: 065
     Dates: start: 20140527, end: 20140529

REACTIONS (1)
  - Pulmonary fibrosis [Not Recovered/Not Resolved]

NARRATIVE: CASE EVENT DATE: 20140603
